FAERS Safety Report 5631784-2 (Version None)
Quarter: 2008Q1

REPORT INFORMATION
  Report Type: 
  Country: None (occurrence: None)
  Receive Date: 20080213
  Receipt Date: 20080130
  Transmission Date: 20080703
  Serious: Yes (Hospitalization)
  Sender: FDA-Public Use
  Company Number: 2007002288

PATIENT
  Age: 66 Year
  Sex: Female

DRUGS (3)
  1. ERLOTINIB (ERLOTINIB HCL) (TABLET) (ERLOTINIB HCL) [Suspect]
     Indication: OVARIAN CANCER
     Dosage: (150 MG, QD), ORAL
     Route: 048
     Dates: start: 20070619, end: 20071206
  2. XANAX [Concomitant]
  3. TRAZOLAN (TRAZODONE HYDROCHLORIDE) [Concomitant]

REACTIONS (3)
  - CEREBROVASCULAR DISORDER [None]
  - DYSPHAGIA [None]
  - GASTRITIS [None]
